FAERS Safety Report 6271427-0 (Version None)
Quarter: 2009Q3

REPORT INFORMATION
  Report Type: 
  Country: None (occurrence: None)
  Receive Date: 20090715
  Receipt Date: 20090715
  Transmission Date: 20100115
  Serious: Yes (Hospitalization)
  Sender: FDA-Public Use
  Company Number: None

PATIENT
  Sex: Male
  Weight: 86.1834 kg

DRUGS (11)
  1. TARCEVA [Suspect]
     Indication: RENAL CELL CARCINOMA
     Dosage: 150MG (1 PILL) Q1D ORAL
     Route: 048
     Dates: start: 20090408
  2. SUTENT [Suspect]
     Dosage: 50MG (1 PILL) Q1D ORAL
     Route: 048
     Dates: start: 20090408
  3. VICODIN [Concomitant]
  4. DOCUSATE SODIUM [Concomitant]
  5. PROAIR HFA [Concomitant]
  6. ADVAIR DISKUS 100/50 [Concomitant]
  7. SIMVASTATIN [Concomitant]
  8. QC SENNA [Concomitant]
  9. FLOMAX [Concomitant]
  10. SUDAFED 12 HOUR [Concomitant]
  11. OXYCODONE HCL [Concomitant]

REACTIONS (8)
  - DIZZINESS [None]
  - DYSPNOEA EXERTIONAL [None]
  - EXTRASYSTOLES [None]
  - PALPITATIONS [None]
  - PERICARDIAL EFFUSION [None]
  - PLEURAL EFFUSION [None]
  - PNEUMONIA [None]
  - VENTRICULAR EXTRASYSTOLES [None]
